FAERS Safety Report 16402839 (Version 1)
Quarter: 2019Q2

REPORT INFORMATION
  Report Type: Spontaneous
  Country: IT (occurrence: IT)
  Receive Date: 20190607
  Receipt Date: 20190607
  Transmission Date: 20190711
  Serious: Yes (Other)
  Sender: FDA-Public Use
  Company Number: IT-TEVA-2019-IT-1059539

PATIENT
  Age: 30 Year
  Sex: Female

DRUGS (7)
  1. ALPRAZOLAM. [Suspect]
     Active Substance: ALPRAZOLAM
     Route: 048
     Dates: start: 20190422, end: 20190422
  2. ARIPIPRAZOLE. [Suspect]
     Active Substance: ARIPIPRAZOLE
     Route: 048
     Dates: start: 20190422, end: 20190422
  3. SERENASE (HALOPERIDOL) [Suspect]
     Active Substance: HALOPERIDOL
     Route: 048
     Dates: start: 20190422, end: 20190422
  4. GABAPENTIN. [Suspect]
     Active Substance: GABAPENTIN
     Route: 048
     Dates: start: 20190422, end: 20190422
  5. TOPIRAMATE. [Suspect]
     Active Substance: TOPIRAMATE
     Route: 048
     Dates: start: 20190422, end: 20190422
  6. LORMETAZEPAM [Suspect]
     Active Substance: LORMETAZEPAM
     Route: 048
     Dates: start: 20190422, end: 20190422
  7. BIPERIDEN [Suspect]
     Active Substance: BIPERIDEN
     Dosage: DOSAGE FORM: UNSPECIFIED
     Route: 048
     Dates: start: 20190422, end: 20190422

REACTIONS (4)
  - Intentional overdose [Recovered/Resolved]
  - Pain [Unknown]
  - Coma [Unknown]
  - Intentional product use issue [Recovered/Resolved]

NARRATIVE: CASE EVENT DATE: 20190422
